FAERS Safety Report 15946658 (Version 1)
Quarter: 2019Q1

REPORT INFORMATION
  Report Type: Spontaneous
  Country: US (occurrence: US)
  Receive Date: 20190211
  Receipt Date: 20190211
  Transmission Date: 20190417
  Serious: No
  Sender: FDA-Public Use
  Company Number: US-PFIZER INC-2018356296

PATIENT
  Age: 13 Year
  Sex: Male
  Weight: 52.79 kg

DRUGS (3)
  1. GENOTROPIN [Suspect]
     Active Substance: SOMATROPIN
     Indication: GROWTH RETARDATION
     Dosage: 1.4 MG DAILY ONCE A DAY
  2. GENOTROPIN [Suspect]
     Active Substance: SOMATROPIN
     Dosage: 1.4 MG, DAILY
     Dates: start: 20180821
  3. GENOTROPIN [Suspect]
     Active Substance: SOMATROPIN
     Indication: BLOOD GROWTH HORMONE
     Dosage: 1.4 ML, DAILY
     Dates: start: 20180821

REACTIONS (5)
  - Device issue [Unknown]
  - Incorrect dose administered [Unknown]
  - Bone density increased [Unknown]
  - Insulin-like growth factor increased [Unknown]
  - Blood calcium increased [Unknown]
